FAERS Safety Report 4340573-0 (Version None)
Quarter: 2004Q2

REPORT INFORMATION
  Report Type: 
  Country: None (occurrence: None)
  Receive Date: 20040416
  Receipt Date: 20040416
  Transmission Date: 20050107
  Serious: Yes (Hospitalization)
  Sender: FDA-Public Use
  Company Number: None

PATIENT
  Age: 43 Year
  Sex: Female
  Weight: 72.1219 kg

DRUGS (1)
  1. REPRONEX [Suspect]
     Indication: INFERTILITY
     Dosage: 150 IU/DAY SC
     Route: 058

REACTIONS (3)
  - INJECTION SITE NECROSIS [None]
  - INJECTION SITE REACTION [None]
  - SKIN DISORDER [None]
